FAERS Safety Report 8368998-7 (Version None)
Quarter: 2012Q2

REPORT INFORMATION
  Report Type: 
  Country: None (occurrence: None)
  Receive Date: 20120518
  Receipt Date: 20120514
  Transmission Date: 20120825
  Serious: No
  Sender: FDA-Public Use
  Company Number: US-PFIZER INC-2012117901

PATIENT
  Sex: Female

DRUGS (3)
  1. PRAVASTATIN [Concomitant]
     Indication: BLOOD CHOLESTEROL INCREASED
     Dosage: 20 MG, DAILY
  2. CELEXA [Concomitant]
     Dosage: 20 MG, DAILY
  3. PREMPRO [Suspect]
     Dosage: 0.5/1.5 MG, DAILY
     Route: 048
     Dates: start: 20111104

REACTIONS (2)
  - MUSCLE SPASMS [None]
  - HOT FLUSH [None]
